FAERS Safety Report 12506549 (Version 1)
Quarter: 2016Q2

REPORT INFORMATION
  Report Type: Report from Study
  Country: US (occurrence: US)
  Receive Date: 20160628
  Receipt Date: 20160628
  Transmission Date: 20160815
  Serious: Yes (Death, Hospitalization)
  Sender: FDA-Public Use
  Company Number: US-EXELIXIS-CABO-16006569

PATIENT
  Age: 64 Year
  Sex: Male

DRUGS (6)
  1. CABOMETYX [Suspect]
     Active Substance: CABOZANTINIB S-MALATE
     Indication: RENAL CANCER
     Dosage: 60 MG, QD
     Route: 048
     Dates: start: 20160525, end: 201606
  2. KYTRIL [Concomitant]
     Active Substance: GRANISETRON HYDROCHLORIDE
  3. MARINOL [Concomitant]
     Active Substance: DRONABINOL
  4. OXYCODONE [Concomitant]
     Active Substance: OXYCODONE
  5. ASPIRIN. [Concomitant]
     Active Substance: ASPIRIN
  6. METROPOLE [Concomitant]

REACTIONS (2)
  - Abdominal pain [Unknown]
  - Death [Fatal]

NARRATIVE: CASE EVENT DATE: 20160613
